FAERS Safety Report 16175647 (Version 1)
Quarter: 2019Q2

REPORT INFORMATION
  Report Type: Spontaneous
  Country: GB (occurrence: GB)
  Receive Date: 20190409
  Receipt Date: 20190409
  Transmission Date: 20190711
  Serious: Yes (Hospitalization)
  Sender: FDA-Public Use
  Company Number: GB-PERRIGO-19GB004407

PATIENT
  Age: 35 Year
  Sex: Female

DRUGS (4)
  1. PARACETAMOL [Suspect]
     Active Substance: ACETAMINOPHEN
     Indication: BACK PAIN
     Dosage: UP TO 7.5 G QD
     Route: 048
  2. GAVISCON ORIGINAL ANTISEED RELIEF [Concomitant]
     Indication: GASTROOESOPHAGEAL REFLUX DISEASE
     Route: 048
     Dates: start: 201702, end: 201710
  3. IBUPROFEN. [Suspect]
     Active Substance: IBUPROFEN
     Indication: BACK PAIN
     Dosage: UP TO 6 G PER DAY
     Route: 048
  4. RENNIE PEPPERMINT [Concomitant]
     Indication: GASTROOESOPHAGEAL REFLUX DISEASE
     Dosage: UP TO 72 TABLETS
     Route: 048
     Dates: start: 201702, end: 201710

REACTIONS (7)
  - Drug abuse [Recovered/Resolved]
  - Self-medication [Recovered/Resolved]
  - Gastric ulcer [Unknown]
  - Overdose [Recovered/Resolved]
  - Coagulopathy [Unknown]
  - Hepatic function abnormal [Not Recovered/Not Resolved]
  - Accidental overdose [Unknown]

NARRATIVE: CASE EVENT DATE: 2017
